FAERS Safety Report 5215271-1 (Version None)
Quarter: 2006Q4

REPORT INFORMATION
  Report Type: 
  Country: None (occurrence: None)
  Receive Date: 20061122
  Receipt Date: 20060501
  Transmission Date: 20070319
  Serious: Yes (Other)
  Sender: FDA-Public Use
  Company Number: HQWYE152503MAY06

PATIENT
  Age: 68 Year
  Sex: Female
  Weight: 77.18 kg

DRUGS (4)
  1. PREMARIN [Suspect]
     Indication: PROPHYLAXIS
     Dosage: ^SMALL AMOUNT ON TIP OF FINGER^ ONCE NIGHTLY (USED 2-3 TIMES ONLY), VAGINAL
     Route: 067
     Dates: start: 20060424, end: 20060426
  2. PREMARIN [Suspect]
     Indication: VULVOVAGINAL DRYNESS
     Dosage: ^SMALL AMOUNT ON TIP OF FINGER^ ONCE NIGHTLY (USED 2-3 TIMES ONLY), VAGINAL
     Route: 067
     Dates: start: 20060424, end: 20060426
  3. NEXIUM [Concomitant]
  4. SYNTHROID [Concomitant]

REACTIONS (1)
  - UTERINE PAIN [None]
